FAERS Safety Report 18589127 (Version 1)
Quarter: 2020Q4

REPORT INFORMATION
  Report Type: Spontaneous
  Country: US (occurrence: US)
  Receive Date: 20201208
  Receipt Date: 20201208
  Transmission Date: 20210114
  Serious: Yes (Hospitalization, Other)
  Sender: FDA-Public Use
  Company Number: US-CIPLA LTD.-2020US08968

PATIENT

DRUGS (1)
  1. GABAPENTIN. [Suspect]
     Active Substance: GABAPENTIN
     Indication: MERALGIA PARAESTHETICA
     Dosage: 600 MILLIGRAM, QID
     Route: 048

REACTIONS (3)
  - Sexual dysfunction [Recovered/Resolved]
  - Somnolence [Recovering/Resolving]
  - Drug intolerance [Recovering/Resolving]
